FAERS Safety Report 6921976-4 (Version None)
Quarter: 2010Q3

REPORT INFORMATION
  Report Type: 
  Country: None (occurrence: None)
  Receive Date: 20100806
  Receipt Date: 20100526
  Transmission Date: 20110219
  Serious: No
  Sender: FDA-Public Use
  Company Number: 2010-07287

PATIENT
  Age: 63 Year
  Sex: Male

DRUGS (1)
  1. RAPAFLO [Suspect]
     Indication: URINARY TRACT DISORDER
     Dosage: 1 CAPSUL, SINGLE, ORAL
     Route: 048
     Dates: start: 20100526, end: 20100526

REACTIONS (2)
  - DIZZINESS [None]
  - NAUSEA [None]
